FAERS Safety Report 8026639 (Version 6)
Quarter: 2013Q4

REPORT INFORMATION
  Report Type: Spontaneous
  Country: CA (occurrence: CA)
  Receive Date: 20110708
  Receipt Date: 20131206
  Transmission Date: 20140711
  Serious: Yes (Hospitalization)
  Sender: FDA-Public Use
  Company Number: CA-GLAXOSMITHKLINE-A0934667A

PATIENT
  Age: 63 Year
  Sex: Female
  Weight: 78.6 kg

DRUGS (13)
  1. ADVAIR [Suspect]
     Indication: CHRONIC OBSTRUCTIVE PULMONARY DISEASE
     Dosage: 1PUFF TWICE PER DAY
     Route: 055
     Dates: start: 2004
  2. SINEMET [Suspect]
     Indication: PARKINSON^S DISEASE
     Route: 065
     Dates: start: 201203, end: 2013
  3. ABILIFY [Suspect]
     Indication: PARKINSON^S DISEASE
     Route: 065
     Dates: start: 2012, end: 2013
  4. ANTI-PSYCHOTIC MEDICATION [Suspect]
     Indication: PRODUCT USED FOR UNKNOWN INDICATION
     Route: 065
  5. VENTOLIN [Concomitant]
     Route: 065
  6. TELMISARTAN [Concomitant]
     Dosage: 80MG AT NIGHT
  7. METFORMIN [Concomitant]
     Dosage: 500MG TWICE PER DAY
  8. ATORVASTATIN [Concomitant]
     Dosage: 20MG AT NIGHT
  9. SEROQUEL XR [Concomitant]
     Dosage: 350MG AT NIGHT
  10. VITAMIN D [Concomitant]
     Dosage: 1000IU PER DAY
  11. OMEPRAZOLE [Concomitant]
     Dosage: 40MG PER DAY
  12. BISOPROLOL [Concomitant]
  13. LITHIUM [Concomitant]
     Route: 065

REACTIONS (22)
  - Cough [Unknown]
  - Productive cough [Unknown]
  - Dyspnoea [Not Recovered/Not Resolved]
  - Asthenia [Unknown]
  - Treatment noncompliance [Unknown]
  - Asthma [Not Recovered/Not Resolved]
  - Wheezing [Not Recovered/Not Resolved]
  - Increased upper airway secretion [Not Recovered/Not Resolved]
  - Chest discomfort [Not Recovered/Not Resolved]
  - Adverse event [Not Recovered/Not Resolved]
  - Anxiety [Recovered/Resolved]
  - Panic attack [Recovered/Resolved]
  - Bronchitis [Not Recovered/Not Resolved]
  - Blood pressure increased [Unknown]
  - Ventricular tachycardia [Recovered/Resolved]
  - Delirium [Recovered/Resolved]
  - Delusion [Recovered/Resolved]
  - Psychotic disorder [Recovered/Resolved]
  - Paranoia [Recovered/Resolved]
  - Schizophrenia [Recovered/Resolved]
  - Arthritis [Unknown]
  - Victim of abuse [Unknown]
